FAERS Safety Report 21028790 (Version 2)
Quarter: 2022Q3

REPORT INFORMATION
  Report Type: Spontaneous
  Country: FR (occurrence: FR)
  Receive Date: 20220630
  Receipt Date: 20220707
  Transmission Date: 20221027
  Serious: Yes (Hospitalization)
  Sender: FDA-Public Use
  Company Number: None

PATIENT
  Age: 70 Year
  Sex: Female
  Weight: 130 kg

DRUGS (9)
  1. CLINDAMYCIN [Suspect]
     Active Substance: CLINDAMYCIN
     Indication: Infection
     Dosage: 1200 MILLIGRAM, Q3D
     Route: 048
     Dates: start: 20220502, end: 20220511
  2. CLINDAMYCIN [Suspect]
     Active Substance: CLINDAMYCIN
     Dosage: 3600 MILLIGRAM, QD
     Route: 065
     Dates: start: 20220502, end: 20220511
  3. LEVOFLOXACIN [Suspect]
     Active Substance: LEVOFLOXACIN
     Indication: Infection
     Dosage: 500 MILLIGRAM, Q2D
     Route: 048
     Dates: start: 20220511, end: 20220531
  4. LEVOFLOXACIN [Suspect]
     Active Substance: LEVOFLOXACIN
     Dosage: 1000 MILLIGRAM, QD
     Route: 065
     Dates: start: 20220511, end: 20220531
  5. LANSOPRAZOLE [Suspect]
     Active Substance: LANSOPRAZOLE
     Indication: Peptic ulcer
     Dosage: 15 MILLIGRAM, QD
     Route: 048
     Dates: start: 20220502, end: 20220517
  6. RIFAMPIN [Suspect]
     Active Substance: RIFAMPIN
     Indication: Infection
     Dosage: 600 MILLIGRAM, Q2D
     Route: 042
     Dates: start: 20220502, end: 20220511
  7. RIFAMPIN [Suspect]
     Active Substance: RIFAMPIN
     Dosage: 1200 MILLIGRAM, QD
     Route: 065
     Dates: start: 20220502, end: 20220511
  8. RIFAMPIN [Suspect]
     Active Substance: RIFAMPIN
     Indication: Infection
     Dosage: 300 MILLIGRAM, Q2D
     Route: 048
     Dates: start: 20220511, end: 20220512
  9. RIFAMPIN [Suspect]
     Active Substance: RIFAMPIN
     Dosage: 600 MILLIGRAM, BID
     Route: 065
     Dates: start: 20220511, end: 20220512

REACTIONS (1)
  - Vascular purpura [Recovering/Resolving]

NARRATIVE: CASE EVENT DATE: 20220513
